FAERS Safety Report 24643044 (Version 2)
Quarter: 2024Q4

REPORT INFORMATION
  Report Type: Spontaneous
  Country: US (occurrence: US)
  Receive Date: 20241120
  Receipt Date: 20241209
  Transmission Date: 20250115
  Serious: No
  Sender: ABBVIE
  Company Number: US-ABBVIE-6005766

PATIENT
  Sex: Female

DRUGS (1)
  1. DALVANCE [Suspect]
     Active Substance: DALBAVANCIN
     Indication: Staphylococcal infection
     Route: 065
     Dates: start: 20241111

REACTIONS (9)
  - Administration site extravasation [Recovered/Resolved]
  - Product preparation error [Unknown]
  - Injection site erythema [Unknown]
  - Injection site discolouration [Unknown]
  - Injection site pain [Recovered/Resolved]
  - Drug ineffective [Unknown]
  - Thrombosis [Unknown]
  - Injection site pain [Unknown]
  - Platelet disorder [Unknown]

NARRATIVE: CASE EVENT DATE: 20241101
